FAERS Safety Report 18793728 (Version 1)
Quarter: 2021Q1

REPORT INFORMATION
  Report Type: Spontaneous
  Country: HR (occurrence: HR)
  Receive Date: 20210127
  Receipt Date: 20210127
  Transmission Date: 20210419
  Serious: Yes (Other)
  Sender: FDA-Public Use
  Company Number: HR-TEVA-2021-HR-1873029

PATIENT
  Sex: Female

DRUGS (1)
  1. PRAXITEN [Suspect]
     Active Substance: OXAZEPAM
     Dosage: 450MG
     Route: 048
     Dates: start: 20201217, end: 20201217

REACTIONS (3)
  - Intentional overdose [Unknown]
  - No adverse event [Unknown]
  - Suicide attempt [Unknown]

NARRATIVE: CASE EVENT DATE: 20201217
